FAERS Safety Report 25474525 (Version 1)
Quarter: 2025Q2

REPORT INFORMATION
  Report Type: Other
  Country: IN (occurrence: IN)
  Receive Date: 20250624
  Receipt Date: 20250624
  Transmission Date: 20250717
  Serious: Yes (Death, Hospitalization)
  Sender: ALVOGEN
  Company Number: IN-ALVOGEN-2025098202

PATIENT
  Age: 51 Year
  Sex: Male

DRUGS (2)
  1. DISULFIRAM [Suspect]
     Active Substance: DISULFIRAM
     Indication: Alcohol rehabilitation
  2. ALCOHOL [Suspect]
     Active Substance: ALCOHOL
     Indication: Alcohol use disorder

REACTIONS (11)
  - Cardiogenic shock [Fatal]
  - Multiple organ dysfunction syndrome [Fatal]
  - Respiratory failure [Fatal]
  - Foaming at mouth [Unknown]
  - Renal tubular necrosis [Fatal]
  - Cardiac dysfunction [Fatal]
  - Metabolic acidosis [Fatal]
  - Cardiac arrest [Fatal]
  - Mental status changes [Unknown]
  - Hypotension [Unknown]
  - Alcohol intolerance [Fatal]
